FAERS Safety Report 15384265 (Version 1)
Quarter: 2018Q3

REPORT INFORMATION
  Report Type: Spontaneous
  Country: US (occurrence: US)
  Receive Date: 20180914
  Receipt Date: 20180914
  Transmission Date: 20181010
  Serious: No
  Sender: FDA-Public Use
  Company Number: US-ELI_LILLY_AND_COMPANY-US201808009409

PATIENT
  Sex: Female

DRUGS (4)
  1. HUMULIN N [Suspect]
     Active Substance: INSULIN HUMAN
     Dosage: UNK UNK, UNKNOWN
     Route: 065
  2. VICTOZA [Concomitant]
     Active Substance: LIRAGLUTIDE
     Indication: PRODUCT USED FOR UNKNOWN INDICATION
  3. METFORMIN [Concomitant]
     Active Substance: METFORMIN HYDROCHLORIDE
     Indication: PRODUCT USED FOR UNKNOWN INDICATION
  4. HUMULIN N [Suspect]
     Active Substance: INSULIN HUMAN
     Indication: TYPE 2 DIABETES MELLITUS
     Dosage: UNK UNK, UNKNOWN
     Route: 065
     Dates: start: 201803

REACTIONS (10)
  - Ligament sprain [Not Recovered/Not Resolved]
  - Ligament sprain [Recovering/Resolving]
  - Blood glucose increased [Recovered/Resolved]
  - Drug ineffective [Unknown]
  - Feeling jittery [Unknown]
  - Blood glucose abnormal [Unknown]
  - Weight increased [Unknown]
  - Discomfort [Unknown]
  - Vision blurred [Unknown]
  - Glycosylated haemoglobin increased [Unknown]
